FAERS Safety Report 13791810 (Version 1)
Quarter: 2017Q3

REPORT INFORMATION
  Report Type: Spontaneous
  Country: US (occurrence: US)
  Receive Date: 20170725
  Receipt Date: 20170725
  Transmission Date: 20171127
  Serious: Yes (Other)
  Sender: FDA-Public Use
  Company Number: None

PATIENT
  Age: 33 Year
  Sex: Female
  Weight: 75.6 kg

DRUGS (13)
  1. ASPIRIN. [Concomitant]
     Active Substance: ASPIRIN
  2. NITROFURANTOIN. [Concomitant]
     Active Substance: NITROFURANTOIN
  3. PROBIOTICS [Concomitant]
     Active Substance: PROBIOTICS NOS
  4. BREO ELLIPTA [Suspect]
     Active Substance: FLUTICASONE FUROATE\VILANTEROL TRIFENATATE
     Indication: ASTHMA
     Dosage: QUANTITY:1 INHALATION(S);?
     Route: 055
     Dates: start: 20170719, end: 20170719
  5. FROVATRIPTAN. [Concomitant]
     Active Substance: FROVATRIPTAN
  6. ASPIRIN. [Concomitant]
     Active Substance: ASPIRIN
  7. LECITHIN [Concomitant]
     Active Substance: LECITHIN
  8. PROAIR HFA [Concomitant]
     Active Substance: ALBUTEROL SULFATE
  9. TYLENOL [Concomitant]
     Active Substance: ACETAMINOPHEN
  10. TIMOLOL. [Concomitant]
     Active Substance: TIMOLOL
  11. CLARATIN [Concomitant]
  12. BYSTOLIC [Concomitant]
     Active Substance: NEBIVOLOL HYDROCHLORIDE
  13. PULMICORT TURBUHALER [Concomitant]
     Active Substance: BUDESONIDE

REACTIONS (7)
  - Dizziness [None]
  - Paraesthesia [None]
  - Headache [None]
  - Asthenia [None]
  - Dyspnoea [None]
  - Hypotension [None]
  - Abdominal discomfort [None]

NARRATIVE: CASE EVENT DATE: 20170719
